FAERS Safety Report 23769735 (Version 1)
Quarter: 2024Q2

REPORT INFORMATION
  Report Type: Report from Study
  Country: US (occurrence: US)
  Receive Date: 20240422
  Receipt Date: 20240422
  Transmission Date: 20240716
  Serious: Yes (Hospitalization, Other)
  Sender: FDA-Public Use
  Company Number: US-JNJFOC-20231182537

PATIENT
  Age: 71 Year
  Sex: Male
  Weight: 96.4 kg

DRUGS (9)
  1. SELEXIPAG [Suspect]
     Active Substance: SELEXIPAG
     Indication: Pulmonary arterial hypertension
     Route: 048
  2. SELEXIPAG [Suspect]
     Active Substance: SELEXIPAG
     Dosage: USING 3 200MCG TABLETS
     Route: 048
  3. SELEXIPAG [Suspect]
     Active Substance: SELEXIPAG
     Dosage: UPTRAVI DOSE 400MCG TWICE DAILY USING 2 200MCG TABLETS
     Route: 048
  4. SELEXIPAG [Suspect]
     Active Substance: SELEXIPAG
     Route: 048
  5. SELEXIPAG [Suspect]
     Active Substance: SELEXIPAG
     Route: 048
  6. SELEXIPAG [Suspect]
     Active Substance: SELEXIPAG
     Dosage: 800 MCG IN THE MORNING AND 600 MCG IN THE EVENING
     Route: 048
  7. SELEXIPAG [Suspect]
     Active Substance: SELEXIPAG
     Route: 048
  8. SELEXIPAG [Suspect]
     Active Substance: SELEXIPAG
     Route: 048
  9. TADALAFIL [Concomitant]
     Active Substance: TADALAFIL

REACTIONS (19)
  - Bacteraemia [Recovered/Resolved]
  - Dyspnoea [Unknown]
  - Paralysis [Recovering/Resolving]
  - Oxygen saturation decreased [Unknown]
  - Fluid retention [Unknown]
  - Dizziness [Recovered/Resolved]
  - Head discomfort [Unknown]
  - Headache [Recovering/Resolving]
  - Muscular weakness [Recovered/Resolved]
  - Coronavirus test positive [Not Recovered/Not Resolved]
  - Balance disorder [Unknown]
  - Heart rate increased [Unknown]
  - Hypoaesthesia [Unknown]
  - Fall [Unknown]
  - Tremor [Unknown]
  - Head injury [Recovering/Resolving]
  - Asthenia [Unknown]
  - Hypoaesthesia [Unknown]
  - Hypotension [Unknown]

NARRATIVE: CASE EVENT DATE: 20240216
